FAERS Safety Report 6032060-9 (Version None)
Quarter: 2009Q1

REPORT INFORMATION
  Report Type: 
  Country: None (occurrence: None)
  Receive Date: 20090108
  Receipt Date: 20081229
  Transmission Date: 20090719
  Serious: Yes (Other)
  Sender: FDA-Public Use
  Company Number: JP-JNJCH-2009000095

PATIENT
  Age: 2 Year
  Sex: Male

DRUGS (2)
  1. ASPIRIN [Suspect]
     Indication: KAWASAKI'S DISEASE
     Route: 048
     Dates: start: 20060311, end: 20060412
  2. IMMUNOGLOBULINS [Suspect]
     Indication: KAWASAKI'S DISEASE
     Dosage: TEXT:2.0 G/KG
     Route: 042

REACTIONS (2)
  - DRUG RASH WITH EOSINOPHILIA AND SYSTEMIC SYMPTOMS [None]
  - HEPATIC FUNCTION ABNORMAL [None]
